FAERS Safety Report 7461965-7 (Version None)
Quarter: 2011Q1

REPORT INFORMATION
  Report Type: 
  Country: None (occurrence: None)
  Receive Date: 20110302
  Receipt Date: 20101109
  Transmission Date: 20110831
  Serious: Yes (Other)
  Sender: FDA-Public Use
  Company Number: 163-21880-10111346

PATIENT
  Age: 65 Year
  Sex: Female

DRUGS (3)
  1. REVLIMID [Suspect]
     Indication: MULTIPLE MYELOMA
     Dosage: 25 MG, 1 IN 1 D, PO, 20 MG, 2 IN 1 D, PO
     Route: 048
     Dates: start: 20100401, end: 20100101
  2. REVLIMID [Suspect]
     Indication: MULTIPLE MYELOMA
     Dosage: 25 MG, 1 IN 1 D, PO, 20 MG, 2 IN 1 D, PO
     Route: 048
     Dates: start: 20100401
  3. DEXAMETHASONE [Concomitant]

REACTIONS (3)
  - TONGUE BITING [None]
  - SWOLLEN TONGUE [None]
  - LIP SWELLING [None]
